FAERS Safety Report 25956202 (Version 1)
Quarter: 2025Q4

REPORT INFORMATION
  Report Type: Report from Study
  Country: US (occurrence: None)
  Receive Date: 20251024
  Receipt Date: 20251024
  Transmission Date: 20260118
  Serious: Yes (Hospitalization)
  Sender: ORGANON
  Company Number: US-ORGANON-O2509USA001765

PATIENT
  Age: 30 Year
  Sex: Female
  Weight: 144.22 kg

DRUGS (6)
  1. IMPLANON [Suspect]
     Active Substance: ETONOGESTREL
     Dosage: 1 IMPLANT, 68 MG (IN LEFT ARM)
     Dates: start: 20250913, end: 20250919
  2. NEXPLANON [Suspect]
     Active Substance: ETONOGESTREL
     Dosage: 1 IMPLANT,68 MILLIGRAM
  3. TESTOSTERONE [Concomitant]
     Active Substance: TESTOSTERONE
  4. PROPRANOLOL HYDROCHLORIDE [Concomitant]
     Active Substance: PROPRANOLOL HYDROCHLORIDE
     Dosage: 20 MILLIGRAM, BID
  5. LAMICTAL XR [Concomitant]
     Active Substance: LAMOTRIGINE
     Dosage: 25 MILLIGRAM, TID
  6. ALBUTEROL [Concomitant]
     Active Substance: ALBUTEROL
     Dosage: UNK, PRN
     Route: 065

REACTIONS (6)
  - Mental disorder [Unknown]
  - Device dislocation [Recovered/Resolved]
  - Implant site pain [Unknown]
  - Last menstrual period determination [Unknown]
  - Device extrusion [Unknown]
  - Intermenstrual bleeding [Unknown]

NARRATIVE: CASE EVENT DATE: 20250901
